FAERS Safety Report 9686358 (Version 1)
Quarter: 2013Q4

REPORT INFORMATION
  Report Type: Spontaneous
  Country: DE (occurrence: None)
  Receive Date: 20131108
  Receipt Date: 20131108
  Transmission Date: 20140711
  Serious: Yes (Congenital Anomaly, Other)
  Sender: FDA-Public Use
  Company Number: AUR-APL-2013-09251

PATIENT
  Age: 1 Year
  Sex: Male
  Weight: 4.04 kg

DRUGS (3)
  1. PAROXETINE [Suspect]
     Indication: ANXIETY DISORDER
     Route: 064
     Dates: start: 20090105
  2. OLANZAPINE [Suspect]
     Indication: PSYCHOTIC DISORDER
     Route: 064
     Dates: start: 20081031, end: 20081218
  3. THYRONAJOD (JODTHYROX) [Concomitant]

REACTIONS (2)
  - Foetal exposure during pregnancy [None]
  - Talipes [None]
